FAERS Safety Report 21708378 (Version 2)
Quarter: 2022Q4

REPORT INFORMATION
  Report Type: Spontaneous
  Country: US (occurrence: US)
  Receive Date: 20221210
  Receipt Date: 20221215
  Transmission Date: 20230113
  Serious: No
  Sender: FDA-Public Use
  Company Number: US-002147023-NVSC2022US285524

PATIENT
  Sex: Female

DRUGS (3)
  1. EXTAVIA [Suspect]
     Active Substance: INTERFERON BETA-1B
     Indication: Product used for unknown indication
     Dosage: UNK
     Route: 065
     Dates: start: 201712
  2. EXTAVIA [Suspect]
     Active Substance: INTERFERON BETA-1B
  3. EXTAVIA [Suspect]
     Active Substance: INTERFERON BETA-1B

REACTIONS (1)
  - Influenza like illness [Unknown]
